FAERS Safety Report 15289900 (Version 2)
Quarter: 2018Q3

REPORT INFORMATION
  Report Type: Report from Study
  Country: US (occurrence: US)
  Receive Date: 20180817
  Receipt Date: 20180906
  Transmission Date: 20181010
  Serious: Yes (Death)
  Sender: FDA-Public Use
  Company Number: US-PFIZER INC-2018331614

PATIENT
  Age: 63 Year
  Sex: Male

DRUGS (2)
  1. CITALOPRAM [Suspect]
     Active Substance: CITALOPRAM HYDROBROMIDE
     Dosage: UNK
  2. PROPANOLOL HCL [Suspect]
     Active Substance: PROPRANOLOL HYDROCHLORIDE
     Dosage: UNK

REACTIONS (7)
  - Toxicity to various agents [Fatal]
  - Depressed level of consciousness [Fatal]
  - Atrioventricular block [Fatal]
  - Hypotension [Fatal]
  - Coma [Fatal]
  - Respiratory depression [Fatal]
  - Bradycardia [Fatal]
